FAERS Safety Report 5589306-0 (Version None)
Quarter: 2008Q1

REPORT INFORMATION
  Report Type: 
  Country: None (occurrence: None)
  Receive Date: 20080109
  Receipt Date: 20080109
  Transmission Date: 20080703
  Serious: Yes (Hospitalization, Disabling)
  Sender: FDA-Public Use
  Company Number: None

PATIENT
  Age: 74 Year
  Sex: Female
  Weight: 54.4316 kg

DRUGS (1)
  1. BONIVA [Suspect]
     Indication: OSTEOPOROSIS
     Dosage: 3 MG IN 3 ML 3 MO INTRAVENOUS
     Route: 042
     Dates: start: 20070416

REACTIONS (8)
  - ATRIAL FIBRILLATION [None]
  - BLINDNESS TRANSIENT [None]
  - CHEST PAIN [None]
  - DIZZINESS [None]
  - ERUCTATION [None]
  - HEADACHE [None]
  - PHARYNGOLARYNGEAL PAIN [None]
  - PNEUMONIA CHLAMYDIAL [None]
